FAERS Safety Report 17254367 (Version 1)
Quarter: 2020Q1

REPORT INFORMATION
  Report Type: Spontaneous
  Country: CN (occurrence: CN)
  Receive Date: 20200109
  Receipt Date: 20200109
  Transmission Date: 20200409
  Serious: Yes (Other)
  Sender: FDA-Public Use
  Company Number: CN-PURDUE-GBR-2020-0074245

PATIENT
  Age: 81 Year
  Sex: Male
  Weight: 51 kg

DRUGS (4)
  1. MECOBALAMIN [Concomitant]
     Active Substance: METHYLCOBALAMIN
     Indication: DIABETIC VASCULAR DISORDER
     Dosage: 0.5 MG, TID
     Route: 048
     Dates: start: 20191219, end: 20191227
  2. AMITRIPTYLINE HYDROCHLORIDE. [Concomitant]
     Active Substance: AMITRIPTYLINE HYDROCHLORIDE
     Indication: NEURALGIA
     Dosage: 25 MG, NOCTE
     Route: 048
     Dates: start: 20191219, end: 20191227
  3. OXYCONTIN [Suspect]
     Active Substance: OXYCODONE HYDROCHLORIDE
     Indication: NEURALGIA
     Dosage: 10 MG, Q12H
     Route: 048
     Dates: start: 20191219, end: 20191225
  4. GABAPENTIN. [Concomitant]
     Active Substance: GABAPENTIN
     Indication: NEURALGIA
     Dosage: 0.3 G, BID
     Route: 048
     Dates: start: 20191219, end: 20191227

REACTIONS (2)
  - Delirium [Recovered/Resolved]
  - Nightmare [Recovered/Resolved]

NARRATIVE: CASE EVENT DATE: 20191224
